FAERS Safety Report 7738727-6 (Version None)
Quarter: 2011Q3

REPORT INFORMATION
  Report Type: 
  Country: None (occurrence: None)
  Receive Date: 20110908
  Receipt Date: 20110902
  Transmission Date: 20111222
  Serious: No
  Sender: FDA-Public Use
  Company Number: US-PFIZER INC-2011200333

PATIENT
  Sex: Female
  Weight: 83.9 kg

DRUGS (8)
  1. SUTENT [Suspect]
     Dosage: 50 MG, 1 CAPSULE EVERY DAY FOR 4 WEEKS ON, 2 WEEKS OFF
     Route: 048
     Dates: start: 20110627
  2. EFFEXOR [Concomitant]
     Dosage: 75 MG, UNK
  3. AMLODIPINE [Concomitant]
     Dosage: 2.5 MG, UNK
  4. PROCHLORPERAZINE [Concomitant]
     Dosage: 5 MG, UNK
  5. PERCOCET [Concomitant]
     Dosage: 2.5-325
  6. CENTRUM SILVER [Concomitant]
     Dosage: UNK
  7. LEVOTHYROXINE [Concomitant]
     Dosage: 100 UG, UNK
  8. TYLENOL-500 [Concomitant]
     Dosage: 325 MG, UNK

REACTIONS (5)
  - ASTHENIA [None]
  - MUSCULAR WEAKNESS [None]
  - HEADACHE [None]
  - NAUSEA [None]
  - TREMOR [None]
